FAERS Safety Report 22858552 (Version 2)
Quarter: 2024Q1

REPORT INFORMATION
  Report Type: Spontaneous
  Country: EG (occurrence: EG)
  Receive Date: 20230824
  Receipt Date: 20240220
  Transmission Date: 20240409
  Serious: Yes (Other)
  Sender: FDA-Public Use
  Company Number: EG-NOVOPROD-1103464

PATIENT
  Age: 864 Month
  Sex: Female
  Weight: 71.5 kg

DRUGS (6)
  1. BIONAL [Concomitant]
     Indication: Supplementation therapy
     Dosage: UNK
     Route: 048
  2. TRESIBA [Suspect]
     Active Substance: INSULIN DEGLUDEC
     Indication: Diabetes mellitus
     Dosage: 20 OR 22U
     Route: 058
  3. ELIQUIS [Concomitant]
     Active Substance: APIXABAN
     Indication: Anticoagulant therapy
     Dosage: 2TAB/DAY
     Route: 048
  4. NOVORAPID [Suspect]
     Active Substance: INSULIN ASPART
     Indication: Diabetes mellitus
     Dosage: 6 IU, TID
     Route: 058
  5. LANOXIN [Concomitant]
     Active Substance: DIGOXIN
     Indication: Cardiovascular disorder
     Dosage: 0.5 TAB/DAY MORNING
     Route: 048
  6. CARVEDILOL [Concomitant]
     Active Substance: CARVEDILOL
     Indication: Cardiovascular disorder
     Dosage: 0.5 TAB TWICE DAILY
     Route: 048

REACTIONS (1)
  - Retinal infiltrates [Not Recovered/Not Resolved]
